FAERS Safety Report 7569938-0 (Version None)
Quarter: 2011Q2

REPORT INFORMATION
  Report Type: 
  Country: None (occurrence: None)
  Receive Date: 20110622
  Receipt Date: 20110622
  Transmission Date: 20111010
  Serious: Yes (Other)
  Sender: FDA-Public Use
  Company Number: None

PATIENT
  Age: 18 Year
  Sex: Female
  Weight: 65.7716 kg

DRUGS (1)
  1. ORTHO TRI-CYCLEN LO [Suspect]
     Indication: CONTRACEPTION
     Dosage: 30 DAILY PO
     Route: 048
     Dates: start: 20110606, end: 20110621

REACTIONS (2)
  - INCORRECT DRUG ADMINISTRATION DURATION [None]
  - MALAISE [None]
